FAERS Safety Report 15508639 (Version 1)
Quarter: 2018Q4

REPORT INFORMATION
  Report Type: Spontaneous
  Country: GB (occurrence: GB)
  Receive Date: 20181016
  Receipt Date: 20181016
  Transmission Date: 20190205
  Serious: Yes (Other)
  Sender: FDA-Public Use
  Company Number: GB-MYLANLABS-2018M1076063

PATIENT
  Age: 55 Year
  Sex: Female
  Weight: 60 kg

DRUGS (2)
  1. MIRTAZAPINE. [Suspect]
     Active Substance: MIRTAZAPINE
     Dosage: 0.3 MG, UNK (15MG DOWN TO 0.3 MG VERY GRADUAL REDUCTION)
     Dates: end: 20180503
  2. MIRTAZAPINE. [Suspect]
     Active Substance: MIRTAZAPINE
     Indication: INSOMNIA
     Dosage: 15 MG, UNK (15MG DOWN TO 0.3 MG VERY GRADUAL REDUCTION)
     Route: 048
     Dates: start: 20151113

REACTIONS (3)
  - Abnormal weight gain [Recovered/Resolved]
  - Withdrawal syndrome [Recovered/Resolved with Sequelae]
  - Restless legs syndrome [Recovered/Resolved]

NARRATIVE: CASE EVENT DATE: 20151116
